FAERS Safety Report 7617386-7 (Version None)
Quarter: 2011Q3

REPORT INFORMATION
  Report Type: 
  Country: None (occurrence: None)
  Receive Date: 20110718
  Receipt Date: 20110712
  Transmission Date: 20111222
  Serious: No
  Sender: FDA-Public Use
  Company Number: US-PFIZER INC-2011157335

PATIENT
  Sex: Male

DRUGS (7)
  1. AMLODIPINE [Concomitant]
     Dosage: 2.5 MG, UNK
     Route: 048
  2. MIRTAZAPINE [Concomitant]
     Dosage: 7.5 MG, UNK
     Route: 048
  3. GLIPIZIDE [Concomitant]
     Dosage: 10 MG, UNK
     Route: 048
  4. CLONAZEPAM [Concomitant]
     Dosage: 0.125 MG, UNK
     Route: 048
  5. ACIPHEX [Concomitant]
     Dosage: 20 MG, UNK
     Route: 048
  6. SUTENT [Suspect]
     Dosage: 37.5 MG, 1X/DAY
     Route: 048
  7. ASPIRIN [Concomitant]
     Dosage: 81 MG, UNK
     Route: 048

REACTIONS (1)
  - AGEUSIA [None]
